FAERS Safety Report 11205183 (Version 1)
Quarter: 2015Q2

REPORT INFORMATION
  Report Type: Spontaneous
  Country: DE (occurrence: DE)
  Receive Date: 20150622
  Receipt Date: 20150622
  Transmission Date: 20150821
  Serious: Yes (Other)
  Sender: FDA-Public Use
  Company Number: DE-JNJFOC-20150614604

PATIENT
  Sex: Female

DRUGS (4)
  1. XARELTO [Suspect]
     Active Substance: RIVAROXABAN
     Indication: EMBOLISM VENOUS
     Route: 048
     Dates: start: 20150602, end: 20150609
  2. XARELTO [Suspect]
     Active Substance: RIVAROXABAN
     Indication: VENOUS THROMBOSIS LIMB
     Route: 048
     Dates: start: 20150602, end: 20150609
  3. XARELTO [Suspect]
     Active Substance: RIVAROXABAN
     Indication: PNEUMONIA
     Route: 048
     Dates: start: 20150602, end: 20150609
  4. XARELTO [Suspect]
     Active Substance: RIVAROXABAN
     Indication: PULMONARY EMBOLISM
     Route: 048
     Dates: start: 20150602, end: 20150609

REACTIONS (6)
  - Nephritis [Unknown]
  - Abdominal pain [Unknown]
  - Proteinuria [Unknown]
  - Back pain [Unknown]
  - Haematuria [Unknown]
  - Constipation [Unknown]
